FAERS Safety Report 4592522-8 (Version None)
Quarter: 2005Q1

REPORT INFORMATION
  Report Type: 
  Country: None (occurrence: None)
  Receive Date: 20050222
  Receipt Date: 20050207
  Transmission Date: 20050727
  Serious: Yes (Hospitalization, Other)
  Sender: FDA-Public Use
  Company Number: 2005017214

PATIENT
  Age: 34 Year
  Sex: Female
  Weight: 52.1637 kg

DRUGS (2)
  1. SOLU-MEDROL               (METHYLPREDNISOLONE SODIUM SUCCINATE) [Suspect]
     Indication: MULTIPLE SCLEROSIS
     Dosage: 1000 MG (1000 MG, SINGLE DOSE)
     Route: 042
     Dates: start: 20041001, end: 20041001
  2. CALCIUM (CALCIUM) [Suspect]
     Indication: ILL-DEFINED DISORDER
     Dosage: ORAL
     Route: 048
     Dates: end: 20041014

REACTIONS (12)
  - AMENORRHOEA [None]
  - BACK PAIN [None]
  - BLOOD URINE PRESENT [None]
  - BONE DENSITY DECREASED [None]
  - BONE PAIN [None]
  - BREAST ATROPHY [None]
  - DYSPNOEA [None]
  - FEELING ABNORMAL [None]
  - HYPERSENSITIVITY [None]
  - MUSCLE ATROPHY [None]
  - UTERINE ATONY [None]
  - VAGINISMUS [None]
